FAERS Safety Report 9248725 (Version 1)
Quarter: 2013Q2

REPORT INFORMATION
  Report Type: Spontaneous
  Country: US (occurrence: None)
  Receive Date: 20130419
  Receipt Date: 20130419
  Transmission Date: 20140414
  Serious: No
  Sender: FDA-Public Use
  Company Number: None

PATIENT
  Age: 74 Year
  Sex: Female

DRUGS (2)
  1. EXJADE [Suspect]
     Route: 048
     Dates: start: 20130304, end: 20130415
  2. EXJADE [Suspect]

REACTIONS (3)
  - Somnolence [None]
  - Vision blurred [None]
  - Visual acuity reduced [None]
